FAERS Safety Report 7467629-8 (Version None)
Quarter: 2011Q2

REPORT INFORMATION
  Report Type: 
  Country: None (occurrence: None)
  Receive Date: 20110505
  Receipt Date: 20110505
  Transmission Date: 20111010
  Serious: Yes (Hospitalization, Other)
  Sender: FDA-Public Use
  Company Number: None

PATIENT
  Age: 51 Year
  Sex: Male
  Weight: 116.9 kg

DRUGS (1)
  1. PRAZOSIN HCL [Suspect]
     Indication: POST-TRAUMATIC STRESS DISORDER
     Dosage: 1-5 MG HS PO
     Route: 048
     Dates: start: 20101215, end: 20101225

REACTIONS (2)
  - LACERATION [None]
  - SYNCOPE [None]
